FAERS Safety Report 5956053-2 (Version None)
Quarter: 2008Q4

REPORT INFORMATION
  Report Type: 
  Country: None (occurrence: None)
  Receive Date: 20081118
  Receipt Date: 20081111
  Transmission Date: 20090506
  Serious: Yes (Other)
  Sender: FDA-Public Use
  Company Number: CH-SP-2008-03577

PATIENT

DRUGS (1)
  1. IMMUCYST [Suspect]
     Indication: CARCINOMA IN SITU OF BLADDER
     Dosage: NOT REPORTED
     Route: 065
     Dates: start: 20080401

REACTIONS (1)
  - BOVINE TUBERCULOSIS [None]
